FAERS Safety Report 16532991 (Version 2)
Quarter: 2019Q3

REPORT INFORMATION
  Report Type: Spontaneous
  Country: US (occurrence: US)
  Receive Date: 20190705
  Receipt Date: 20190724
  Transmission Date: 20191004
  Serious: No
  Sender: FDA-Public Use
  Company Number: US-ASTRAZENECA-2019SE86058

PATIENT
  Age: 26455 Day
  Sex: Female
  Weight: 88.9 kg

DRUGS (2)
  1. BYDUREON BCISE [Suspect]
     Active Substance: EXENATIDE
     Indication: TYPE 2 DIABETES MELLITUS
     Route: 058
     Dates: start: 20190606
  2. BYDUREON [Suspect]
     Active Substance: EXENATIDE
     Indication: TYPE 2 DIABETES MELLITUS
     Route: 058
     Dates: start: 201905

REACTIONS (16)
  - Nasopharyngitis [Recovering/Resolving]
  - Fibromyalgia [Unknown]
  - Asthenia [Recovering/Resolving]
  - Vomiting [Recovering/Resolving]
  - Nausea [Unknown]
  - Device malfunction [Unknown]
  - Device leakage [Unknown]
  - Chills [Recovering/Resolving]
  - Malaise [Recovering/Resolving]
  - Injection site mass [Unknown]
  - Insomnia [Unknown]
  - Feeding disorder [Recovering/Resolving]
  - Injection site bruising [Unknown]
  - Cold sweat [Recovering/Resolving]
  - Intentional device misuse [Unknown]
  - Medication error [Unknown]

NARRATIVE: CASE EVENT DATE: 20190606
